FAERS Safety Report 5690841-5 (Version None)
Quarter: 2008Q2

REPORT INFORMATION
  Report Type: 
  Country: None (occurrence: None)
  Receive Date: 20080401
  Receipt Date: 20080327
  Transmission Date: 20081010
  Serious: Yes (Other)
  Sender: FDA-Public Use
  Company Number: D0056686A

PATIENT

DRUGS (2)
  1. ZANTAC [Suspect]
     Route: 065
  2. TAVEGIL [Suspect]
     Route: 065

REACTIONS (1)
  - CIRCULATORY COLLAPSE [None]
